FAERS Safety Report 19968348 (Version 1)
Quarter: 2021Q4

REPORT INFORMATION
  Report Type: Spontaneous
  Country: US (occurrence: US)
  Receive Date: 20211019
  Receipt Date: 20211019
  Transmission Date: 20220303
  Serious: Yes (Other)
  Sender: FDA-Public Use
  Company Number: US-BOEHRINGERINGELHEIM-2021-BI-133168

PATIENT
  Sex: Male

DRUGS (1)
  1. JARDIANCE [Suspect]
     Active Substance: EMPAGLIFLOZIN
     Indication: Off label use
     Dates: start: 2017, end: 202109

REACTIONS (4)
  - Off label use [Unknown]
  - Clear cell renal cell carcinoma [Unknown]
  - Glycosylated haemoglobin abnormal [Unknown]
  - Nephrectomy [Unknown]
